FAERS Safety Report 5931073-2 (Version None)
Quarter: 2008Q4

REPORT INFORMATION
  Report Type: 
  Country: None (occurrence: None)
  Receive Date: 20081027
  Receipt Date: 20081016
  Transmission Date: 20090506
  Serious: Yes (Other)
  Sender: FDA-Public Use
  Company Number: US-WYE-H06409108

PATIENT
  Age: 22 Year
  Sex: Female
  Weight: 63.56 kg

DRUGS (5)
  1. PRISTIQ [Suspect]
     Indication: DEPRESSION
     Dosage: 50 MG, FREQUENCY UNKNOWN
     Route: 048
     Dates: start: 20080801, end: 20081001
  2. PRISTIQ [Suspect]
     Dosage: INCREASED TO UNKNOWN DOSE
     Route: 048
     Dates: start: 20081001
  3. AMBIEN [Concomitant]
  4. ZOFRAN [Concomitant]
  5. SEROQUEL [Concomitant]

REACTIONS (5)
  - DEHYDRATION [None]
  - LOSS OF CONSCIOUSNESS [None]
  - LYMPHADENOPATHY [None]
  - SYNCOPE [None]
  - VIRAL INFECTION [None]
